FAERS Safety Report 5846367-9 (Version None)
Quarter: 2008Q3

REPORT INFORMATION
  Report Type: 
  Country: None (occurrence: None)
  Receive Date: 20080815
  Receipt Date: 20080805
  Transmission Date: 20090109
  Serious: Yes (Other)
  Sender: FDA-Public Use
  Company Number: US-JNJFOC-20080801710

PATIENT
  Sex: Female
  Weight: 142.88 kg

DRUGS (4)
  1. TOPAMAX [Suspect]
     Indication: MIGRAINE PROPHYLAXIS
     Route: 048
  2. TORADOL [Suspect]
     Indication: MIGRAINE
  3. PERCOCET [Concomitant]
     Indication: PAIN
  4. SOMA [Concomitant]
     Indication: PAIN

REACTIONS (4)
  - MIGRAINE [None]
  - NAUSEA [None]
  - ULCER [None]
  - WEIGHT DECREASED [None]
